FAERS Safety Report 13528424 (Version 3)
Quarter: 2019Q3

REPORT INFORMATION
  Report Type: Spontaneous
  Country: CA (occurrence: CA)
  Receive Date: 20170509
  Receipt Date: 20190916
  Transmission Date: 20191004
  Serious: Yes (Hospitalization)
  Sender: FDA-Public Use
  Company Number: CA-TEVA-766828ACC

PATIENT
  Age: 11 Year
  Sex: Male
  Weight: 60 kg

DRUGS (2)
  1. ACICLOVIR [Suspect]
     Active Substance: ACYCLOVIR
     Indication: MENINGITIS VIRAL
     Route: 065
  2. CEFTRIAXONE SODIUM FOR INJECTION BP [Concomitant]
     Active Substance: CEFTRIAXONE SODIUM

REACTIONS (8)
  - Blood pressure increased [Recovering/Resolving]
  - Headache [Recovering/Resolving]
  - Blood creatinine increased [Recovering/Resolving]
  - Nausea [Recovering/Resolving]
  - Vision blurred [Recovering/Resolving]
  - Vomiting [Recovering/Resolving]
  - Acute kidney injury [Recovering/Resolving]
  - Posterior reversible encephalopathy syndrome [Recovering/Resolving]
